FAERS Safety Report 21629827 (Version 1)
Quarter: 2022Q4

REPORT INFORMATION
  Report Type: Report from Study
  Country: US (occurrence: US)
  Receive Date: 20221122
  Receipt Date: 20221122
  Transmission Date: 20230113
  Serious: No
  Sender: FDA-Public Use
  Company Number: US-ABBVIE-22K-163-4255257-00

PATIENT
  Age: 64 Year
  Sex: Female

DRUGS (4)
  1. HUMIRA [Suspect]
     Active Substance: ADALIMUMAB
     Indication: Rheumatoid arthritis
     Dosage: CITRATE FREE?STRENGTH 40MG
     Route: 058
  2. MODERNA COVID-19 VACCINE [Concomitant]
     Active Substance: ELASOMERAN
     Indication: COVID-19 immunisation
     Dosage: FIRST DOSE?1 IN ONCE
     Route: 030
     Dates: start: 20210305, end: 20210305
  3. MODERNA COVID-19 VACCINE [Concomitant]
     Active Substance: ELASOMERAN
     Indication: COVID-19 immunisation
     Dosage: SECOND DOSE?1 IN ONCE
     Route: 030
     Dates: start: 20210402, end: 20210402
  4. MODERNA COVID-19 VACCINE [Concomitant]
     Active Substance: ELASOMERAN
     Indication: COVID-19 immunisation
     Dosage: BOOSTER DOSE? 1IN ONCE
     Route: 030
     Dates: start: 20211114, end: 20211114

REACTIONS (10)
  - Pharyngeal swelling [Unknown]
  - Arthralgia [Recovering/Resolving]
  - Urinary tract infection [Recovering/Resolving]
  - Sputum discoloured [Unknown]
  - Lower respiratory tract infection [Recovering/Resolving]
  - Throat irritation [Unknown]
  - Pain in extremity [Not Recovered/Not Resolved]
  - Respiratory tract infection [Recovering/Resolving]
  - Cough [Unknown]
  - Pyrexia [Unknown]

NARRATIVE: CASE EVENT DATE: 20220926
